FAERS Safety Report 7442583-3 (Version None)
Quarter: 2011Q2

REPORT INFORMATION
  Report Type: 
  Country: None (occurrence: None)
  Receive Date: 20110428
  Receipt Date: 20101216
  Transmission Date: 20111010
  Serious: No
  Sender: FDA-Public Use
  Company Number: US-ASTRAZENECA-2010SE59784

PATIENT
  Age: 63 Year
  Sex: Female

DRUGS (2)
  1. ZOMIG [Suspect]
     Route: 048
  2. METHERGINE [Concomitant]

REACTIONS (6)
  - CONFUSIONAL STATE [None]
  - ROAD TRAFFIC ACCIDENT [None]
  - SUTURE INSERTION [None]
  - MIGRAINE [None]
  - BALANCE DISORDER [None]
  - DRUG DOSE OMISSION [None]
